FAERS Safety Report 4541202-3 (Version None)
Quarter: 2004Q4

REPORT INFORMATION
  Report Type: 
  Country: None (occurrence: None)
  Receive Date: 20041229
  Receipt Date: 20041221
  Transmission Date: 20050328
  Serious: Yes (Hospitalization)
  Sender: FDA-Public Use
  Company Number: CA-ABBOTT-04P-028-0284290-03

PATIENT
  Sex: Female

DRUGS (6)
  1. RITONAVIR SOFT GELATIN CAPSULES [Suspect]
     Indication: HIV INFECTION
     Route: 048
     Dates: start: 20021211, end: 20040123
  2. DIDANOSINE [Concomitant]
     Indication: HIV INFECTION
     Route: 048
     Dates: start: 20020710, end: 20040123
  3. OLANZAPINE [Concomitant]
     Indication: SCHIZOPHRENIA
     Route: 048
     Dates: start: 20030303, end: 20040123
  4. TIPRANAVIR [Concomitant]
     Indication: HIV INFECTION
     Route: 048
     Dates: start: 20021211, end: 20040123
  5. TENOFOVIR [Concomitant]
     Indication: HIV INFECTION
     Route: 048
     Dates: start: 20020710, end: 20040123
  6. IMODIUM [Concomitant]
     Indication: DIARRHOEA
     Dosage: 2 MG-16 MG
     Route: 048
     Dates: start: 20000823, end: 20040123

REACTIONS (8)
  - CONSTIPATION [None]
  - ENCEPHALOPATHY [None]
  - FANCONI SYNDROME ACQUIRED [None]
  - HYPERTENSIVE ENCEPHALOPATHY [None]
  - LEUKOENCEPHALOPATHY [None]
  - RENAL TUBULAR ACIDOSIS [None]
  - RENAL TUBULAR DISORDER [None]
  - URINARY TRACT INFECTION [None]
